FAERS Safety Report 5565806-4 (Version None)
Quarter: 2007Q4

REPORT INFORMATION
  Report Type: 
  Country: None (occurrence: None)
  Receive Date: 20071213
  Receipt Date: 20071206
  Transmission Date: 20080405
  Serious: Yes (Disabling)
  Sender: FDA-Public Use
  Company Number: GXBR2007US01930

PATIENT
  Age: 81 Year
  Sex: Male
  Weight: 77.1 kg

DRUGS (1)
  1. METOPROLOL SUCCINATE [Suspect]
     Indication: MYOCARDIAL INFARCTION
     Dosage: 25 MG, QD, ORAL
     Route: 048
     Dates: start: 20061201

REACTIONS (1)
  - HYPOACUSIS [None]
